FAERS Safety Report 19708276 (Version 1)
Quarter: 2021Q3

REPORT INFORMATION
  Report Type: Spontaneous
  Country: US (occurrence: US)
  Receive Date: 20210817
  Receipt Date: 20210817
  Transmission Date: 20211014
  Serious: Yes (Hospitalization)
  Sender: FDA-Public Use
  Company Number: None

PATIENT
  Age: 61 Year
  Sex: Male

DRUGS (4)
  1. BOOST LIQ [Concomitant]
  2. ROPINIROLE. [Concomitant]
     Active Substance: ROPINIROLE
  3. GABAPENTIN. [Concomitant]
     Active Substance: GABAPENTIN
  4. KESIMPTA [Suspect]
     Active Substance: OFATUMUMAB
     Indication: MULTIPLE SCLEROSIS
     Dosage: ?          OTHER FREQUENCY:MONTHLY;?
     Route: 058
     Dates: start: 20210625

REACTIONS (1)
  - Pneumonia viral [None]

NARRATIVE: CASE EVENT DATE: 20210814
